FAERS Safety Report 17333708 (Version 2)
Quarter: 2020Q1

REPORT INFORMATION
  Report Type: Spontaneous
  Country: NL (occurrence: NL)
  Receive Date: 20200128
  Receipt Date: 20200204
  Transmission Date: 20200409
  Serious: Yes (Other)
  Sender: FDA-Public Use
  Company Number: NL-TEVA-2020-NL-1174704

PATIENT
  Sex: Male

DRUGS (3)
  1. AVAMYS (FLUTICASON) [Concomitant]
  2. PANTOZOL [Suspect]
     Active Substance: PANTOPRAZOLE SODIUM
     Indication: ABDOMINAL PAIN
     Dosage: 20 MILLIGRAM DAILY; STOMACH-RESISTANT TABLET, 20 MG (MILLIGRAMS), ONCE A DAY, 1
     Dates: start: 201911
  3. OMEPRAZOL [Suspect]
     Active Substance: OMEPRAZOLE
     Indication: ABDOMINAL PAIN
     Dosage: 20 MILLIGRAM DAILY; STOMACH-RESISTANT CAPSULE, 20 MG (MILLIGRAMS), ONCE DAILY, 1
     Dates: start: 201911

REACTIONS (4)
  - Heart rate increased [Recovered/Resolved]
  - Hyperventilation [Recovered/Resolved]
  - Pallor [Recovered/Resolved]
  - Syncope [Recovered/Resolved]
